FAERS Safety Report 26058517 (Version 1)
Quarter: 2025Q4

REPORT INFORMATION
  Report Type: Spontaneous
  Country: US (occurrence: US)
  Receive Date: 20251118
  Receipt Date: 20251118
  Transmission Date: 20260118
  Serious: No
  Sender: MYLAN
  Company Number: US-MYLANLABS-2025M1094956

PATIENT
  Age: 91 Year
  Sex: Female

DRUGS (4)
  1. BREYNA [Suspect]
     Active Substance: BUDESONIDE\FORMOTEROL FUMARATE
     Indication: Product used for unknown indication
     Dosage: 320 PER 9 MICROGRAM, BID (2 INHALATIONS EVERY 12 HOURS)
     Dates: start: 20251103
  2. BREYNA [Suspect]
     Active Substance: BUDESONIDE\FORMOTEROL FUMARATE
     Dosage: 320 PER 9 MICROGRAM, BID (2 INHALATIONS EVERY 12 HOURS)
     Route: 055
     Dates: start: 20251103
  3. BREYNA [Suspect]
     Active Substance: BUDESONIDE\FORMOTEROL FUMARATE
     Dosage: 320 PER 9 MICROGRAM, BID (2 INHALATIONS EVERY 12 HOURS)
     Route: 055
     Dates: start: 20251103
  4. BREYNA [Suspect]
     Active Substance: BUDESONIDE\FORMOTEROL FUMARATE
     Dosage: 320 PER 9 MICROGRAM, BID (2 INHALATIONS EVERY 12 HOURS)
     Dates: start: 20251103

REACTIONS (3)
  - Wrong technique in device usage process [Unknown]
  - Device mechanical issue [Unknown]
  - Device malfunction [Unknown]

NARRATIVE: CASE EVENT DATE: 20251103
